FAERS Safety Report 10754097 (Version 1)
Quarter: 2015Q1

REPORT INFORMATION
  Report Type: Report from Study
  Country: FR (occurrence: FR)
  Receive Date: 20150202
  Receipt Date: 20150202
  Transmission Date: 20150721
  Serious: Yes (Hospitalization)
  Sender: FDA-Public Use
  Company Number: FR-ROCHE-1527106

PATIENT
  Sex: Male

DRUGS (2)
  1. BEVACIZUMAB [Suspect]
     Active Substance: BEVACIZUMAB
     Indication: NON-SMALL CELL LUNG CANCER
     Dosage: LAST DOSE PRIOR TO DYSPHAGIA: 25/SEP/2014 ?LAST DOSE PRIOR TO GENERAL STATE DETERIORATION: 30/OCT/20
     Route: 065
     Dates: start: 20130627
  2. PEMETREXED [Suspect]
     Active Substance: PEMETREXED
     Indication: NON-SMALL CELL LUNG CANCER
     Dosage: LAST DOSE PRIOR TO DYSPHAGIA: 25/SEP/2014 ?LAST DOSE PRIOR TO GENERAL STATE DETERIORATION: 30/OCT/20
     Route: 065
     Dates: start: 20130627

REACTIONS (2)
  - Dysphagia [Recovered/Resolved]
  - General physical health deterioration [Recovering/Resolving]

NARRATIVE: CASE EVENT DATE: 20141008
